FAERS Safety Report 16567603 (Version 2)
Quarter: 2019Q3

REPORT INFORMATION
  Report Type: Spontaneous
  Country: US (occurrence: US)
  Receive Date: 20190712
  Receipt Date: 20190807
  Transmission Date: 20191004
  Serious: Yes (Other)
  Sender: FDA-Public Use
  Company Number: US-009507513-1907USA002593

PATIENT
  Age: 72 Year
  Sex: Female

DRUGS (4)
  1. CALCIUM (UNSPECIFIED) [Concomitant]
     Active Substance: CALCIUM
  2. PROVENTIL [Suspect]
     Active Substance: ALBUTEROL
     Indication: VOCAL CORD DYSFUNCTION
     Dosage: AS NEEDED; ROUTE OF ADMINISTRATION: ORAL INHALATION
     Dates: start: 2009
  3. VITAMIN D (UNSPECIFIED) [Concomitant]
     Active Substance: VITAMIN D NOS
  4. CYANOCOBALAMIN. [Concomitant]
     Active Substance: CYANOCOBALAMIN

REACTIONS (5)
  - Poor quality device used [Unknown]
  - Dyspnoea [Recovered/Resolved]
  - Product use in unapproved indication [Unknown]
  - Product quality issue [Unknown]
  - Choking [Recovered/Resolved]

NARRATIVE: CASE EVENT DATE: 2009
